FAERS Safety Report 4767689-9 (Version None)
Quarter: 2005Q3

REPORT INFORMATION
  Report Type: 
  Country: None (occurrence: None)
  Receive Date: 20050912
  Receipt Date: 20050815
  Transmission Date: 20060218
  Serious: No
  Sender: FDA-Public Use
  Company Number: 200510368BYL

PATIENT
  Age: 58 Year
  Sex: Female

DRUGS (3)
  1. ASPIRIN [Suspect]
     Indication: THROMBOSIS PROPHYLAXIS
     Dosage: 100 MG, TOTAL DAILY, ORAL
     Route: 048
     Dates: start: 20050722, end: 20050726
  2. PREMARIN [Suspect]
     Indication: VAGINAL INFECTION
     Dosage: 0.625 MG, TOTAL DAILY, ORAL
     Route: 048
     Dates: start: 20050722, end: 20050726
  3. MEDKIRON (MEDROXYPROGESTORNE ACETATE) [Concomitant]
     Indication: VAGINAL INFECTION
     Dosage: 2.5 MG, TOTAL DAILY, ORAL
     Route: 048
     Dates: start: 20050722, end: 20050726

REACTIONS (4)
  - ABNORMAL SENSATION IN EYE [None]
  - PARAESTHESIA [None]
  - PARAESTHESIA OF GENITAL FEMALE [None]
  - PARAESTHESIA ORAL [None]
